FAERS Safety Report 4775757-0 (Version None)
Quarter: 2005Q3

REPORT INFORMATION
  Report Type: 
  Country: None (occurrence: None)
  Receive Date: 20050922
  Receipt Date: 20041103
  Transmission Date: 20060218
  Serious: Yes (Congenital Anomaly, Other)
  Sender: FDA-Public Use
  Company Number: CA-BRISTOL-MYERS SQUIBB COMPANY-12754289

PATIENT
  Age: 29 Year
  Sex: Female

DRUGS (2)
  1. REYATAZ [Suspect]
     Dosage: ONGOING AT CONCEPTION
     Route: 048
     Dates: start: 20040712, end: 20041207
  2. COMBIVIR [Suspect]
     Dosage: ONGOING AT CONCEPTION DOSAGE 150/300 MG
     Route: 048
     Dates: start: 20040310, end: 20041003

REACTIONS (5)
  - ABORTION INDUCED [None]
  - HYDROPS FOETALIS [None]
  - PLEURAL EFFUSION [None]
  - PREGNANCY [None]
  - TRISOMY 18 [None]
